FAERS Safety Report 19274965 (Version 4)
Quarter: 2021Q3

REPORT INFORMATION
  Report Type: Spontaneous
  Country: CA (occurrence: CA)
  Receive Date: 20210519
  Receipt Date: 20210902
  Transmission Date: 20211014
  Serious: Yes (Hospitalization)
  Sender: FDA-Public Use
  Company Number: CA-SPECGX-T202101164

PATIENT
  Age: 39 Year
  Sex: Female

DRUGS (36)
  1. METHADOSE [Suspect]
     Active Substance: METHADONE HYDROCHLORIDE
     Dosage: 40 MILLIGRAM
     Route: 065
  2. METHADOSE [Suspect]
     Active Substance: METHADONE HYDROCHLORIDE
     Dosage: 85 MILLIGRAM
     Route: 065
  3. HYDROMORPHONE [Suspect]
     Active Substance: HYDROMORPHONE
     Indication: DRUG USE DISORDER
     Dosage: 10 MILLIGRAM
     Route: 042
  4. HYDROMORPHONE [Suspect]
     Active Substance: HYDROMORPHONE
     Dosage: 90 MILLIGRAM, BID
     Route: 042
  5. HYDROMORPHONE [Suspect]
     Active Substance: HYDROMORPHONE
     Dosage: 75 MILLIGRAM, 1 EVERY .5 DAYS
     Route: 042
  6. MORPHINE [Suspect]
     Active Substance: MORPHINE
     Dosage: 100 MILLIGRAM
     Route: 048
  7. MORPHINE [Suspect]
     Active Substance: MORPHINE
     Dosage: UNK,  (30?50MG ORALLY Q2 HR PRN)
     Route: 048
  8. METHADOSE [Suspect]
     Active Substance: METHADONE HYDROCHLORIDE
     Dosage: 90 MILLIGRAM
     Route: 065
  9. METHADOSE [Suspect]
     Active Substance: METHADONE HYDROCHLORIDE
     Dosage: 65 MILLIGRAM
     Route: 065
  10. METHADOSE [Suspect]
     Active Substance: METHADONE HYDROCHLORIDE
     Dosage: 80 MILLIGRAM
     Route: 065
  11. METHADOSE [Suspect]
     Active Substance: METHADONE HYDROCHLORIDE
     Dosage: 95 MILLIGRAM, QD
     Route: 065
  12. METHADOSE [Suspect]
     Active Substance: METHADONE HYDROCHLORIDE
     Dosage: 70 MILLIGRAM
     Route: 065
  13. METHADOSE [Suspect]
     Active Substance: METHADONE HYDROCHLORIDE
     Dosage: 28 MILLIGRAM
     Route: 065
  14. CANNABIS SATIVA [Suspect]
     Active Substance: CANNABIS SATIVA FLOWERING TOP
     Indication: PRODUCT USED FOR UNKNOWN INDICATION
     Dosage: UNK
     Route: 065
  15. LEVAMISOLE [Suspect]
     Active Substance: LEVAMISOLE
     Indication: DRUG ABUSE
     Dosage: UNK
     Route: 065
  16. COCAINE [Suspect]
     Active Substance: COCAINE
     Indication: PRODUCT USED FOR UNKNOWN INDICATION
     Dosage: UNK
     Route: 065
  17. METHADOSE [Suspect]
     Active Substance: METHADONE HYDROCHLORIDE
     Dosage: 125 MILLIGRAM
     Route: 065
  18. METHADOSE [Suspect]
     Active Substance: METHADONE HYDROCHLORIDE
     Dosage: 135 MILLIGRAM
     Route: 065
  19. METHADOSE [Suspect]
     Active Substance: METHADONE HYDROCHLORIDE
     Dosage: 50 MILLIGRAM
     Route: 065
  20. HYDROMORPHONE [Suspect]
     Active Substance: HYDROMORPHONE
     Dosage: 90 MILLIGRAM, BID
     Route: 030
  21. METHADOSE [Suspect]
     Active Substance: METHADONE HYDROCHLORIDE
     Indication: DRUG USE DISORDER
     Dosage: 60 MILLIGRAM, QD
     Route: 065
  22. METHADOSE [Suspect]
     Active Substance: METHADONE HYDROCHLORIDE
     Dosage: 110 MILLIGRAM
     Route: 065
  23. METHADOSE [Suspect]
     Active Substance: METHADONE HYDROCHLORIDE
     Dosage: 155 MILLIGRAM
     Route: 065
  24. HYDROMORPHONE [Suspect]
     Active Substance: HYDROMORPHONE
     Dosage: 10 MILLIGRAM
     Route: 030
  25. MORPHINE [Suspect]
     Active Substance: MORPHINE
     Dosage: 300 MILLIGRAM
     Route: 048
  26. MORPHINE [Suspect]
     Active Substance: MORPHINE
     Dosage: 400 MILLIGRAM
     Route: 048
  27. METHADOSE [Suspect]
     Active Substance: METHADONE HYDROCHLORIDE
     Dosage: 50 MILLIGRAM
     Route: 065
  28. METHADOSE [Suspect]
     Active Substance: METHADONE HYDROCHLORIDE
     Dosage: 145 MILLIGRAM
     Route: 065
  29. FENTANYL. [Suspect]
     Active Substance: FENTANYL
     Indication: DRUG ABUSE
     Dosage: 1 GRAM, QD
     Route: 042
  30. MORPHINE [Suspect]
     Active Substance: MORPHINE
     Dosage: 360 MILLIGRAM
     Route: 048
  31. MORPHINE [Suspect]
     Active Substance: MORPHINE
     Dosage: 600 MILLIGRAM (1 EVERY)
     Route: 048
  32. LEVAMISOLE [Suspect]
     Active Substance: LEVAMISOLE
     Indication: OVERDOSE
  33. MORPHINE [Suspect]
     Active Substance: MORPHINE
     Indication: DRUG USE DISORDER
     Dosage: 400 MILLIGRAM
     Route: 048
  34. MORPHINE [Suspect]
     Active Substance: MORPHINE
     Dosage: 30 MILLIGRAM
     Route: 048
  35. NALOXONE [Suspect]
     Active Substance: NALOXONE
     Indication: DRUG THERAPY
     Dosage: UNK
     Route: 065
  36. METHADOSE [Suspect]
     Active Substance: METHADONE HYDROCHLORIDE
     Dosage: 145 MILLIGRAM
     Route: 065

REACTIONS (11)
  - Sedation [Recovered/Resolved]
  - Off label use [Unknown]
  - Restlessness [Recovering/Resolving]
  - Drug use disorder [Recovered/Resolved]
  - Drug withdrawal syndrome [Recovering/Resolving]
  - Drug abuse [Unknown]
  - Maternal exposure during pregnancy [Unknown]
  - Overdose [Unknown]
  - Rhinorrhoea [Recovered/Resolved]
  - Hyperhidrosis [Recovering/Resolving]
  - Condition aggravated [Recovered/Resolved]
